FAERS Safety Report 8367321-1 (Version None)
Quarter: 2012Q2

REPORT INFORMATION
  Report Type: 
  Country: None (occurrence: None)
  Receive Date: 20120517
  Receipt Date: 20120515
  Transmission Date: 20120825
  Serious: Yes (Hospitalization)
  Sender: FDA-Public Use
  Company Number: IT-PFIZER INC-2012118689

PATIENT
  Sex: Male

DRUGS (3)
  1. CYTARABINE [Suspect]
     Route: 065
  2. CARBOPLATIN [Suspect]
     Route: 065
  3. ETOPOSIDE [Suspect]
     Route: 065

REACTIONS (1)
  - FEBRILE NEUTROPENIA [None]
